FAERS Safety Report 19460792 (Version 1)
Quarter: 2021Q2

REPORT INFORMATION
  Report Type: Spontaneous
  Country: CO (occurrence: CO)
  Receive Date: 20210625
  Receipt Date: 20210625
  Transmission Date: 20210717
  Serious: Yes (Other)
  Sender: FDA-Public Use
  Company Number: CO-AMGEN-COLSP2021095442

PATIENT
  Age: 51 Year
  Sex: Female
  Weight: 62 kg

DRUGS (17)
  1. NEULASTA [Suspect]
     Active Substance: PEGFILGRASTIM
     Indication: ADENOCARCINOMA OF COLON
     Dosage: 6 MILLIGRAM, QD
     Route: 058
     Dates: start: 20210307
  2. FLUOROURACIL. [Concomitant]
     Active Substance: FLUOROURACIL
     Indication: ADENOCARCINOMA OF COLON
     Dosage: 716 MILLIGRAM, QD
     Route: 042
     Dates: start: 20210307
  3. OXALIPLATIN. [Concomitant]
     Active Substance: OXALIPLATIN
     Indication: ADENOCARCINOMA OF COLON
     Dosage: 152.15 MILLIGRAM, QD
     Route: 042
     Dates: start: 20210307
  4. CALCIUM FOLINATE [Concomitant]
     Active Substance: LEUCOVORIN CALCIUM
     Indication: ADENOCARCINOMA OF COLON
     Dosage: 716 MILLIGRAM, QD
     Route: 042
     Dates: start: 20210307
  5. DEXAMETHASONE PHOSPHATE [Concomitant]
     Active Substance: DEXAMETHASONE PHOSPHATE
     Indication: ADENOCARCINOMA OF COLON
     Dosage: 8 MILLIGRAM, QD
     Route: 042
     Dates: start: 20210307
  6. FOSAPREPITANT [Concomitant]
     Active Substance: FOSAPREPITANT
     Indication: ADENOCARCINOMA OF COLON
     Dosage: 150 MILLIGRAM, QD
     Route: 042
     Dates: start: 20210307
  7. ONDANSETRON [Concomitant]
     Active Substance: ONDANSETRON
     Indication: METASTASES TO LIVER
  8. NEULASTA [Suspect]
     Active Substance: PEGFILGRASTIM
     Indication: METASTASES TO LIVER
  9. OXALIPLATIN. [Concomitant]
     Active Substance: OXALIPLATIN
     Indication: METASTASES TO LIVER
  10. MVASI [Suspect]
     Active Substance: BEVACIZUMAB-AWWB
     Indication: ADENOCARCINOMA OF COLON
     Dosage: 340 MILLIGRAM, QD
     Route: 042
     Dates: start: 20210307
  11. CALCIUM FOLINATE [Concomitant]
     Active Substance: LEUCOVORIN CALCIUM
     Indication: METASTASES TO LIVER
  12. DEXAMETHASONE PHOSPHATE [Concomitant]
     Active Substance: DEXAMETHASONE PHOSPHATE
     Indication: METASTASES TO LIVER
  13. FOSAPREPITANT [Concomitant]
     Active Substance: FOSAPREPITANT
     Indication: METASTASES TO LIVER
  14. ONDANSETRON [Concomitant]
     Active Substance: ONDANSETRON
     Indication: ADENOCARCINOMA OF COLON
     Dosage: 16 MILLIGRAM, QD
     Route: 042
     Dates: start: 20210307
  15. PREGABALIN. [Concomitant]
     Active Substance: PREGABALIN
     Indication: PAIN
     Dosage: 75 MILLIGRAM, QD
     Route: 048
     Dates: start: 20210307
  16. MVASI [Suspect]
     Active Substance: BEVACIZUMAB-AWWB
     Indication: METASTASES TO LIVER
  17. FLUOROURACIL. [Concomitant]
     Active Substance: FLUOROURACIL
     Indication: METASTASES TO LIVER

REACTIONS (1)
  - Neuropathy peripheral [Not Recovered/Not Resolved]

NARRATIVE: CASE EVENT DATE: 20210307
